FAERS Safety Report 18721322 (Version 1)
Quarter: 2021Q1

REPORT INFORMATION
  Report Type: Spontaneous
  Country: US (occurrence: US)
  Receive Date: 20210109
  Receipt Date: 20210109
  Transmission Date: 20210419
  Serious: No
  Sender: FDA-Public Use
  Company Number: US-LUPIN PHARMACEUTICALS INC.-2020-11462

PATIENT
  Age: 80 Year
  Sex: Male

DRUGS (1)
  1. BUDESONIDE INHALATION SUSPENSION, 0.5 MG/2 ML [Suspect]
     Active Substance: BUDESONIDE
     Indication: CHRONIC OBSTRUCTIVE PULMONARY DISEASE
     Dosage: UNK
     Route: 065

REACTIONS (3)
  - Product use issue [Unknown]
  - Product prescribing error [Unknown]
  - No adverse event [Unknown]
